FAERS Safety Report 8595332 (Version 3)
Quarter: 2013Q4

REPORT INFORMATION
  Report Type: Spontaneous
  Country: DE (occurrence: DE)
  Receive Date: 20120604
  Receipt Date: 20131224
  Transmission Date: 20140711
  Serious: Yes (Hospitalization, Other)
  Sender: FDA-Public Use
  Company Number: DE-ELI_LILLY_AND_COMPANY-DE201205008048

PATIENT
  Age: 51 Year
  Sex: Female

DRUGS (8)
  1. OLANZAPINE [Suspect]
     Dosage: 10 MG, QD
  2. OLANZAPINE [Suspect]
     Dosage: 20 MG, QD
  3. OLANZAPINE [Suspect]
     Dosage: 30 MG, SINGLE
  4. LORAZEPAM [Concomitant]
     Dosage: 5 MG, UNK
  5. L-THYROXINE [Concomitant]
     Dosage: 25 UG, QD
  6. BENZODIAZEPINE RELATED DRUGS [Concomitant]
  7. FLUPHENAZINE [Concomitant]
  8. AMISULPRIDE [Concomitant]

REACTIONS (8)
  - Hypothermia [Unknown]
  - Catatonia [Unknown]
  - Hypophagia [Unknown]
  - Prescribed overdose [Unknown]
  - Blood creatinine increased [Unknown]
  - Protein total abnormal [Unknown]
  - Body mass index decreased [Unknown]
  - Hypothyroidism [Unknown]
